FAERS Safety Report 20639138 (Version 5)
Quarter: 2022Q2

REPORT INFORMATION
  Report Type: Report from Study
  Country: BE (occurrence: BE)
  Receive Date: 20220326
  Receipt Date: 20220427
  Transmission Date: 20220720
  Serious: Yes (Death, Hospitalization)
  Sender: FDA-Public Use
  Company Number: BE-PFIZER INC-202200363606

PATIENT
  Age: 73 Year
  Sex: Male
  Weight: 78 kg

DRUGS (11)
  1. RITUXIMAB [Suspect]
     Active Substance: RITUXIMAB
     Indication: Diffuse large B-cell lymphoma
     Dosage: 375 MILLIGRAM/SQ.METER, 1Q3W CONCENTRATE FOR SOLUTION FOR INFUSION
     Route: 042
     Dates: start: 20220110, end: 20220131
  2. SOLU-MEDROL [Suspect]
     Active Substance: METHYLPREDNISOLONE SODIUM SUCCINATE
     Indication: Prophylaxis
     Dosage: 40 MG, 1X/DAY?CUMULATIVE DOSE TO FIRST REACTION 80 MG
     Route: 042
     Dates: start: 20220131, end: 20220201
  3. BENDAMUSTINE [Suspect]
     Active Substance: BENDAMUSTINE
     Indication: Diffuse large B-cell lymphoma
     Dosage: 90 MILLIGRAM/SQ. METER, 1X/DAY POWDER FOR CONCENTRATE FOR SOLUTION FOR INFUSION
     Route: 042
     Dates: start: 20220110, end: 20220111
  4. BENDAMUSTINE [Suspect]
     Active Substance: BENDAMUSTINE
     Dosage: 90 MILLIGRAM/SQ. METER, 1X/DAY POWDER FOR CONCENTRATE FOR SOLUTION FOR INFUSION
     Route: 042
     Dates: start: 20220131, end: 20220201
  5. ZOLPIDEM [Concomitant]
     Active Substance: ZOLPIDEM TARTRATE
  6. ALLOPURINOL [Concomitant]
     Active Substance: ALLOPURINOL
     Dosage: UNK
     Dates: start: 20220110
  7. DAFALGAN [Concomitant]
     Active Substance: ACETAMINOPHEN
     Dosage: UNK
     Dates: start: 20220110
  8. NEBIVOLOL [Concomitant]
     Active Substance: NEBIVOLOL
     Dosage: UNK
  9. POVIDONE-IODINE [Concomitant]
     Active Substance: POVIDONE-IODINE
  10. PALONOSETRON [Concomitant]
     Active Substance: PALONOSETRON
     Dosage: UNK
     Dates: start: 20220110
  11. ZYRTEC (BELGIUM) [Concomitant]
     Dosage: UNK
     Dates: start: 20220110

REACTIONS (1)
  - Pneumonia [Fatal]

NARRATIVE: CASE EVENT DATE: 20220220
